FAERS Safety Report 6288107-8 (Version None)
Quarter: 2009Q3

REPORT INFORMATION
  Report Type: 
  Country: None (occurrence: None)
  Receive Date: 20090729
  Receipt Date: 20081015
  Transmission Date: 20100115
  Serious: No
  Sender: FDA-Public Use
  Company Number: A0752182A

PATIENT
  Age: 72 Year
  Sex: Female

DRUGS (5)
  1. ZANTAC [Suspect]
     Dosage: 150MG TWICE PER DAY
     Route: 048
     Dates: start: 20081001
  2. ALLERGY SHOTS [Concomitant]
  3. CALTRATE [Concomitant]
  4. BENADRYL [Concomitant]
  5. EPIPEN [Concomitant]

REACTIONS (2)
  - PRURITUS [None]
  - RASH [None]
